FAERS Safety Report 10073826 (Version 1)
Quarter: 2014Q2

REPORT INFORMATION
  Report Type: Spontaneous
  Country: DE (occurrence: DE)
  Receive Date: 20140411
  Receipt Date: 20140411
  Transmission Date: 20141212
  Serious: Yes (Hospitalization)
  Sender: FDA-Public Use
  Company Number: US-ASTRAZENECA-2014SE24651

PATIENT
  Age: 3 Month
  Sex: Male
  Weight: 3.7 kg

DRUGS (5)
  1. SYNAGIS [Suspect]
     Indication: VENTRICULAR SEPTAL DEFECT
     Route: 030
     Dates: start: 20140204, end: 20140204
  2. SYNAGIS [Suspect]
     Indication: VENTRICULAR SEPTAL DEFECT
     Route: 030
     Dates: start: 20140228, end: 20140228
  3. FUROSEMIDE [Concomitant]
     Indication: PRODUCT USED FOR UNKNOWN INDICATION
  4. SPIRONOLACTONE [Concomitant]
     Indication: PRODUCT USED FOR UNKNOWN INDICATION
  5. FERRO SANOL [Concomitant]
     Indication: PRODUCT USED FOR UNKNOWN INDICATION

REACTIONS (2)
  - Bronchitis [Recovered/Resolved]
  - Respiratory syncytial virus infection [Recovered/Resolved]
